FAERS Safety Report 10654253 (Version 1)
Quarter: 2014Q4

REPORT INFORMATION
  Report Type: Spontaneous
  Country: US (occurrence: None)
  Receive Date: 20141205
  Receipt Date: 20141205
  Transmission Date: 20150529
  Serious: Yes (Hospitalization)
  Sender: FDA-Public Use
  Company Number: 163-POMAL-14092139

PATIENT
  Age: 84 Year
  Sex: Female

DRUGS (3)
  1. LEVOTHYROXINE (LEVOTHYROXINE ) (UNKNOWN) [Concomitant]
  2. POMALYST [Suspect]
     Active Substance: POMALIDOMIDE
     Indication: PLASMA CELL MYELOMA
     Dosage: 4 MG, 21 IN 28 D, PO?
     Route: 048
     Dates: start: 20140819, end: 20140821
  3. FOSAMAX (ALENDRONATE SODIUM) (UNKNOWN) [Concomitant]

REACTIONS (1)
  - Pyrexia [None]

NARRATIVE: CASE EVENT DATE: 20140821
